FAERS Safety Report 10240866 (Version 1)
Quarter: 2014Q2

REPORT INFORMATION
  Report Type: Spontaneous
  Country: CA (occurrence: CA)
  Receive Date: 20140617
  Receipt Date: 20140617
  Transmission Date: 20141212
  Serious: Yes (Death, Life-Threatening, Hospitalization)
  Sender: FDA-Public Use
  Company Number: CA-ROCHE-1419545

PATIENT
  Age: 81 Year
  Sex: Male
  Weight: 92 kg

DRUGS (3)
  1. AVASTIN [Suspect]
     Indication: PRODUCT USED FOR UNKNOWN INDICATION
     Dosage: DURATION: 44 DAYS
     Route: 042
  2. FLUOROURACIL [Concomitant]
  3. IRINOTECAN HYDROCHLORIDE [Concomitant]
     Route: 042

REACTIONS (1)
  - Dyspnoea [Fatal]
